FAERS Safety Report 8850504 (Version 2)
Quarter: 2013Q1

REPORT INFORMATION
  Report Type: Spontaneous
  Country: US (occurrence: US)
  Receive Date: 20121019
  Receipt Date: 20130205
  Transmission Date: 20140127
  Serious: No
  Sender: FDA-Public Use
  Company Number: US-ASTRAZENECA-2012SE79169

PATIENT
  Age: 62 Year
  Sex: Male

DRUGS (2)
  1. SYMBICORT PMDI [Suspect]
     Dosage: FREQUENCY UNKNOWN
     Route: 055
  2. SPIRIVA [Concomitant]

REACTIONS (5)
  - Confusional state [Unknown]
  - Speech disorder [Unknown]
  - Malaise [Unknown]
  - Dyspnoea [Unknown]
  - Drug dose omission [Unknown]
